FAERS Safety Report 5564305-3 (Version None)
Quarter: 2007Q4

REPORT INFORMATION
  Report Type: 
  Country: None (occurrence: None)
  Receive Date: 20071214
  Receipt Date: 20071214
  Transmission Date: 20080405
  Serious: Yes (Hospitalization)
  Sender: FDA-Public Use
  Company Number: None

PATIENT
  Sex: Male
  Weight: 20.9 kg

DRUGS (9)
  1. CYTARABINE [Suspect]
     Dosage: 70 MG
  2. DOXORUBICIN HYDROCHLORIDE [Suspect]
     Dosage: 49.2 MG
  3. L-ASPARAGINASE [Suspect]
     Dosage: 2050 UNIT
  4. METHOTREXATE [Suspect]
     Dosage: 12 MG
  5. PREDNISONE [Suspect]
     Dosage: 35 MG
  6. VINCRISTINE SULFATE [Suspect]
     Dosage: 1.64 MG
  7. BACTRIM [Concomitant]
  8. TENEX [Concomitant]
  9. ZANTAC [Concomitant]

REACTIONS (11)
  - CARDIOMEGALY [None]
  - HEPATIC STEATOSIS [None]
  - HERPES ZOSTER [None]
  - LUNG ABSCESS [None]
  - MYOCARDIAC ABSCESS [None]
  - PANCREATIC ABSCESS [None]
  - PULMONARY CONGESTION [None]
  - RENAL ABSCESS [None]
  - SKIN ULCER [None]
  - STAPHYLOCOCCAL ABSCESS [None]
  - STAPHYLOCOCCAL SEPSIS [None]
